FAERS Safety Report 4937132-5 (Version None)
Quarter: 2006Q1

REPORT INFORMATION
  Report Type: 
  Country: None (occurrence: None)
  Receive Date: 20060307
  Receipt Date: 20060307
  Transmission Date: 20060701
  Serious: Yes (Other)
  Sender: FDA-Public Use
  Company Number: None

PATIENT
  Age: 66 Year
  Sex: Male
  Weight: 79.3795 kg

DRUGS (1)
  1. ZYPREXA [Suspect]
     Dates: start: 20050101, end: 20060201

REACTIONS (2)
  - DIABETES MELLITUS [None]
  - PANCREATITIS [None]
